FAERS Safety Report 22321804 (Version 1)
Quarter: 2023Q2

REPORT INFORMATION
  Report Type: Spontaneous
  Country: US (occurrence: US)
  Receive Date: 20230516
  Receipt Date: 20230516
  Transmission Date: 20230721
  Serious: No
  Sender: FDA-Public Use
  Company Number: US-drreddys-SPO/USA/23/0164306

PATIENT
  Age: 62 Year
  Sex: Female

DRUGS (1)
  1. METOPROLOL SUCCINATE [Suspect]
     Active Substance: METOPROLOL SUCCINATE
     Indication: Product used for unknown indication
     Dosage: EXTENDED RELEASE

REACTIONS (2)
  - Breathing-related sleep disorder [Recovering/Resolving]
  - Parasomnia [Recovering/Resolving]
